FAERS Safety Report 24238702 (Version 3)
Quarter: 2024Q4

REPORT INFORMATION
  Report Type: Spontaneous
  Country: US (occurrence: US)
  Receive Date: 20240822
  Receipt Date: 20241223
  Transmission Date: 20250115
  Serious: No
  Sender: PFIZER
  Company Number: US-PFIZER INC-202400044616

PATIENT
  Age: 78 Year
  Sex: Female

DRUGS (2)
  1. IBRANCE [Suspect]
     Active Substance: PALBOCICLIB
     Indication: Breast cancer female
     Dosage: 100 MG, CYCLIC (21 DAYS; 7 DAYS OFF)
     Route: 048
  2. FASLODEX [Suspect]
     Active Substance: FULVESTRANT
     Dosage: UNK
     Route: 042

REACTIONS (4)
  - Oedema peripheral [Unknown]
  - Pain in extremity [Unknown]
  - Arthralgia [Unknown]
  - Illness [Unknown]

NARRATIVE: CASE EVENT DATE: 20240101
